FAERS Safety Report 8510470-5 (Version None)
Quarter: 2012Q3

REPORT INFORMATION
  Report Type: 
  Country: None (occurrence: None)
  Receive Date: 20120715
  Receipt Date: 20120709
  Transmission Date: 20120928
  Serious: Yes (Death, Life-Threatening)
  Sender: FDA-Public Use
  Company Number: US-009507513-1207USA002266

PATIENT

DRUGS (10)
  1. LEVOTHROID [Concomitant]
     Dosage: 0.05 MICROGRAM, UNK
  2. TRAMADOL HCL [Concomitant]
  3. CARAFATE [Concomitant]
     Dosage: 1 UNK, UNK
  4. CLARITIN [Concomitant]
  5. ENALAPRIL MALEATE [Concomitant]
  6. JANUVIA [Suspect]
     Indication: DIABETES MELLITUS
     Dosage: 100 MG, QD
     Route: 048
     Dates: start: 20120615
  7. TRILIPIX [Concomitant]
  8. LEVEMIR [Concomitant]
  9. CRESTOR [Concomitant]
     Dosage: 20 MG, UNK
  10. DEXILANT [Concomitant]

REACTIONS (1)
  - DEATH [None]
